FAERS Safety Report 8559906-4 (Version None)
Quarter: 2012Q3

REPORT INFORMATION
  Report Type: 
  Country: None (occurrence: None)
  Receive Date: 20120802
  Receipt Date: 20120730
  Transmission Date: 20120928
  Serious: Yes (Other)
  Sender: FDA-Public Use
  Company Number: PHEH2012US014808

PATIENT
  Sex: Female

DRUGS (3)
  1. CALCIUM [Concomitant]
  2. RECLAST [Suspect]
     Dosage: UNK UKN, UNK
     Route: 042
  3. RECLAST [Suspect]
     Dosage: UNK UKN, UNK
     Route: 042

REACTIONS (6)
  - MUSCLE SPASMS [None]
  - MYALGIA [None]
  - DRUG INEFFECTIVE [None]
  - AUTOIMMUNE DISORDER [None]
  - ARTHRALGIA [None]
  - ARTHRITIS [None]
